FAERS Safety Report 15215554 (Version 1)
Quarter: 2018Q3

REPORT INFORMATION
  Report Type: Spontaneous
  Country: US (occurrence: US)
  Receive Date: 20180730
  Receipt Date: 20180730
  Transmission Date: 20181010
  Serious: No
  Sender: FDA-Public Use
  Company Number: PHEH2018US030059

PATIENT
  Age: 57 Year
  Sex: Female
  Weight: 58.97 kg

DRUGS (1)
  1. VOTRIENT [Suspect]
     Active Substance: PAZOPANIB HYDROCHLORIDE
     Indication: CHOLANGIOCARCINOMA
     Dosage: 800 MG, QD (GOING BACK BETWEEN 2 TABS OR 3 TABS OR 4 TABS DAILY)
     Route: 048
     Dates: start: 20171111

REACTIONS (3)
  - Blood bilirubin increased [Unknown]
  - Hypertension [Unknown]
  - Hair colour changes [Unknown]
